FAERS Safety Report 21800260 (Version 1)
Quarter: 2022Q4

REPORT INFORMATION
  Report Type: Report from Study
  Country: US (occurrence: US)
  Receive Date: 20221230
  Receipt Date: 20221230
  Transmission Date: 20230112
  Serious: Yes (Other)
  Sender: FDA-Public Use
  Company Number: US-EXELIXIS-XL18422059275

PATIENT

DRUGS (2)
  1. PLACEBO [Suspect]
     Active Substance: UNSPECIFIED INGREDIENT
     Indication: Malignant neoplasm of islets of Langerhans
     Dosage: 60 MG, QD
     Route: 048
     Dates: start: 20220526, end: 20221129
  2. CABOZANTINIB [Suspect]
     Active Substance: CABOZANTINIB
     Indication: Malignant neoplasm of islets of Langerhans
     Dosage: 60 MG, QD
     Route: 048
     Dates: start: 20220526, end: 20221129

REACTIONS (1)
  - Embolism [Recovered/Resolved]

NARRATIVE: CASE EVENT DATE: 20221129
